FAERS Safety Report 12136553 (Version 1)
Quarter: 2016Q1

REPORT INFORMATION
  Report Type: Spontaneous
  Country: US (occurrence: None)
  Receive Date: 20160301
  Receipt Date: 20160301
  Transmission Date: 20160526
  Serious: Yes (Life-Threatening, Hospitalization)
  Sender: FDA-Public Use
  Company Number: None

PATIENT
  Age: 64 Year
  Sex: Male
  Weight: 79.38 kg

DRUGS (9)
  1. TAZTIA XT [Concomitant]
     Active Substance: DILTIAZEM HYDROCHLORIDE
  2. ALBUTERAL [Concomitant]
     Active Substance: ALBUTEROL
  3. FLURBIPROFEN. [Concomitant]
     Active Substance: FLURBIPROFEN
  4. SYMBACORTCLARITINE [Concomitant]
  5. LISINOPRIL. [Suspect]
     Active Substance: LISINOPRIL
     Indication: BLOOD PRESSURE ABNORMAL
  6. SPIRIVA [Concomitant]
     Active Substance: TIOTROPIUM BROMIDE MONOHYDRATE
  7. ATORVASTATIN [Concomitant]
     Active Substance: ATORVASTATIN
  8. PROMTHAZINE [Concomitant]
  9. CHLORTHALIDONE. [Concomitant]
     Active Substance: CHLORTHALIDONE

REACTIONS (4)
  - Dyspnoea [None]
  - Drug hypersensitivity [None]
  - Angioedema [None]
  - Coronary artery bypass [None]
